FAERS Safety Report 25260417 (Version 1)
Quarter: 2025Q2

REPORT INFORMATION
  Report Type: Spontaneous
  Country: US (occurrence: None)
  Receive Date: 20250501
  Receipt Date: 20250501
  Transmission Date: 20250716
  Serious: Yes (unspecified)
  Sender: FDA-CTU
  Company Number: None

PATIENT

DRUGS (1)
  1. VENOFER [Suspect]
     Active Substance: IRON SUCROSE
     Indication: Iron deficiency anaemia
     Dates: start: 20230118

REACTIONS (5)
  - Infusion related reaction [None]
  - Chest pain [None]
  - Pain [None]
  - Chest discomfort [None]
  - Pain [None]

NARRATIVE: CASE EVENT DATE: 20250429
